FAERS Safety Report 9885449 (Version 5)
Quarter: 2014Q2

REPORT INFORMATION
  Report Type: Report from Study
  Country: JP (occurrence: JP)
  Receive Date: 20140210
  Receipt Date: 20140612
  Transmission Date: 20141212
  Serious: Yes (Hospitalization, Other)
  Sender: FDA-Public Use
  Company Number: JP-AMGEN-JPNCT2014009097

PATIENT
  Age: 57 Year
  Sex: Female
  Weight: 48 kg

DRUGS (19)
  1. ROMIPLOSTIM - KHK [Suspect]
     Indication: IMMUNE THROMBOCYTOPENIC PURPURA
     Dosage: 10 MUG/KG, QWK
     Route: 058
     Dates: start: 20130508
  2. PREDONINE                          /00016201/ [Concomitant]
     Indication: IMMUNE THROMBOCYTOPENIC PURPURA
     Dosage: 10 MG, UNK
     Route: 065
     Dates: start: 20130424, end: 20130527
  3. GLOBULIN [Concomitant]
     Indication: IMMUNE THROMBOCYTOPENIC PURPURA
     Dosage: 400 MG/KG, UNK
     Route: 065
     Dates: start: 20130521, end: 20130523
  4. FERROMIA [Concomitant]
     Indication: IRON DEFICIENCY ANAEMIA
     Dosage: UNK
     Route: 048
  5. FLOMOX                             /01418603/ [Concomitant]
     Indication: TOOTH INFECTION
     Dosage: UNK
     Route: 048
  6. SLOW-K [Concomitant]
     Indication: TRICUSPID VALVE INCOMPETENCE
     Dosage: UNK
     Route: 048
  7. LASIX                              /00032601/ [Concomitant]
     Indication: TRICUSPID VALVE INCOMPETENCE
     Dosage: UNK
     Route: 048
  8. ALDACTONE A [Concomitant]
     Indication: TRICUSPID VALVE INCOMPETENCE
     Dosage: UNK
     Route: 048
  9. LANIRAPID [Concomitant]
     Indication: TRICUSPID VALVE INCOMPETENCE
     Dosage: UNK
     Route: 048
  10. MAINTATE [Concomitant]
     Indication: TRICUSPID VALVE INCOMPETENCE
     Dosage: UNK
     Route: 048
  11. WARFARIN [Concomitant]
     Indication: TRICUSPID VALVE INCOMPETENCE
     Dosage: UNK
     Route: 048
  12. MYSLEE [Concomitant]
     Indication: INSOMNIA
     Dosage: UNK
     Route: 048
  13. AMOBAN [Concomitant]
     Indication: INSOMNIA
     Dosage: UNK
     Route: 048
  14. LENDORMIN DAINIPPO [Concomitant]
     Indication: INSOMNIA
     Dosage: UNK
     Route: 048
  15. CALONAL [Concomitant]
     Indication: TOOTH INFECTION
     Dosage: UNK
     Route: 048
  16. TAKEPRON [Concomitant]
     Indication: PROPHYLAXIS
     Dosage: UNK
     Route: 048
  17. REBAMIPIDE [Concomitant]
     Indication: PROPHYLAXIS
     Dosage: UNK
     Route: 065
  18. FAMOTIDINE [Concomitant]
     Indication: PROPHYLAXIS
     Dosage: UNK
     Route: 065
  19. ADONA                              /00056903/ [Concomitant]
     Indication: PROPHYLAXIS
     Dosage: UNK
     Route: 065

REACTIONS (6)
  - Anaemia [Not Recovered/Not Resolved]
  - Red blood cell count decreased [Not Recovered/Not Resolved]
  - Myelodysplastic syndrome [Not Recovered/Not Resolved]
  - Upper gastrointestinal haemorrhage [Recovered/Resolved]
  - White blood cell count decreased [Not Recovered/Not Resolved]
  - Tooth infection [Recovered/Resolved]
